FAERS Safety Report 12839229 (Version 1)
Quarter: 2016Q4

REPORT INFORMATION
  Report Type: Spontaneous
  Country: US (occurrence: US)
  Receive Date: 20161012
  Receipt Date: 20161012
  Transmission Date: 20170207
  Serious: No
  Sender: FDA-Public Use
  Company Number: None

PATIENT
  Age: 85 Year
  Weight: 65.32 kg

DRUGS (17)
  1. ROBAXIN [Suspect]
     Active Substance: METHOCARBAMOL
     Indication: LIMB INJURY
     Dosage: ?          QUANTITY:20;?
     Route: 048
     Dates: start: 20160919, end: 20160922
  2. ROBAXIN [Suspect]
     Active Substance: METHOCARBAMOL
     Indication: MYALGIA
     Dosage: ?          QUANTITY:20;?
     Route: 048
     Dates: start: 20160919, end: 20160922
  3. AMLODIPINE BESYLATE. [Concomitant]
     Active Substance: AMLODIPINE BESYLATE
  4. METOPROLOL TARTRATE. [Concomitant]
     Active Substance: METOPROLOL TARTRATE
  5. CALCIUM + VIT D + MAGNESIUM [Concomitant]
  6. BENEDRYL LIQUIGELS [Concomitant]
  7. EQUATE VISION FORMULA 50+ W/LUTEIN + OMEGA 3 [Concomitant]
  8. PREMARIN [Concomitant]
     Active Substance: ESTROGENS, CONJUGATED
  9. SYSTANE LUB EYE DROPS [Concomitant]
  10. HYDROCHLOROTHIAZIDE. [Concomitant]
     Active Substance: HYDROCHLOROTHIAZIDE
  11. CLOPIDOGREL [Concomitant]
     Active Substance: CLOPIDOGREL BISULFATE
  12. CIPLA [Concomitant]
  13. CLONIDINE. [Concomitant]
     Active Substance: CLONIDINE
  14. TAHITIAN NONI JUICE [Concomitant]
  15. SIMVASTATIN. [Concomitant]
     Active Substance: SIMVASTATIN
  16. ASPIRIN. [Concomitant]
     Active Substance: ASPIRIN
  17. TYLENOL EX STRENGTH [Concomitant]

REACTIONS (6)
  - Nausea [None]
  - Pruritus [None]
  - Chest discomfort [None]
  - Dyspnoea [None]
  - Dizziness [None]
  - Productive cough [None]

NARRATIVE: CASE EVENT DATE: 20160902
